FAERS Safety Report 12865391 (Version 4)
Quarter: 2018Q4

REPORT INFORMATION
  Report Type: Spontaneous
  Country: FR (occurrence: FR)
  Receive Date: 20161020
  Receipt Date: 20181018
  Transmission Date: 20190204
  Serious: Yes (Life-Threatening, Other)
  Sender: FDA-Public Use
  Company Number: FR-TAKEDA-2016MPI009064

PATIENT
  Age: 61 Year
  Sex: Female
  Weight: 50 kg

DRUGS (4)
  1. DARATUMUMAB [Suspect]
     Active Substance: DARATUMUMAB
     Indication: PLASMA CELL MYELOMA
     Dosage: 865 MG, UNK
     Route: 042
     Dates: start: 20160412
  2. DEXAMETHASONE. [Concomitant]
     Active Substance: DEXAMETHASONE
     Indication: PLASMA CELL MYELOMA
     Dosage: UNK
     Route: 065
     Dates: start: 20160412
  3. VELCADE [Suspect]
     Active Substance: BORTEZOMIB
     Indication: PLASMA CELL MYELOMA
     Dosage: 2.1 MG, UNK
     Route: 058
     Dates: start: 20160412
  4. THALIDOMIDE [Concomitant]
     Active Substance: THALIDOMIDE
     Indication: PLASMA CELL MYELOMA
     Dosage: UNK
     Route: 048
     Dates: start: 20160412

REACTIONS (1)
  - Thrombotic microangiopathy [Recovered/Resolved]

NARRATIVE: CASE EVENT DATE: 20161007
